FAERS Safety Report 24595656 (Version 2)
Quarter: 2024Q4

REPORT INFORMATION
  Report Type: Spontaneous
  Country: US (occurrence: US)
  Receive Date: 20241109
  Receipt Date: 20241119
  Transmission Date: 20250115
  Serious: Yes (Disabling, Other)
  Sender: ABBVIE
  Company Number: US-ABBVIE-5990515

PATIENT
  Sex: Female

DRUGS (10)
  1. BOTOX [Suspect]
     Active Substance: ONABOTULINUMTOXINA
     Indication: Product used for unknown indication
     Dosage: TIME INTERVAL: AS NECESSARY
     Route: 065
  2. NURTEC ODT [Suspect]
     Active Substance: RIMEGEPANT SULFATE
     Indication: Migraine
     Route: 065
  3. TOPAMAX [Suspect]
     Active Substance: TOPIRAMATE
     Indication: Pain
     Route: 065
     Dates: start: 2010
  4. TOPAMAX [Suspect]
     Active Substance: TOPIRAMATE
     Indication: Pain
     Route: 065
  5. TOPAMAX [Suspect]
     Active Substance: TOPIRAMATE
     Indication: Pain
     Route: 065
  6. TOPAMAX [Suspect]
     Active Substance: TOPIRAMATE
     Indication: Pain
     Route: 065
  7. ADDERALL [Concomitant]
     Active Substance: AMPHETAMINE ASPARTATE\AMPHETAMINE SULFATE\DEXTROAMPHETAMINE SACCHARATE\DEXTROAMPHETAMINE SULFATE
     Indication: Product used for unknown indication
     Dosage: 37.5 MG OF DAILY 10 MG OF ADDERALL TAKEN AS 5 MG DAILY
  8. KLONOPIN [Concomitant]
     Active Substance: CLONAZEPAM
     Indication: Product used for unknown indication
  9. ZYRTEC [Concomitant]
     Active Substance: CETIRIZINE HYDROCHLORIDE
     Indication: Product used for unknown indication
     Dosage: PRN
  10. ASTEMIZOLE [Suspect]
     Active Substance: ASTEMIZOLE
     Indication: Migraine
     Route: 065

REACTIONS (24)
  - Mast cell activation syndrome [Unknown]
  - Disability [Unknown]
  - Drug ineffective [Unknown]
  - Drug ineffective [Unknown]
  - Abdominal migraine [Unknown]
  - COVID-19 [Unknown]
  - Streptococcal infection [Unknown]
  - Feeding disorder [Unknown]
  - Ophthalmic migraine [Unknown]
  - Hyperkinesia [Unknown]
  - Post-traumatic stress disorder [Unknown]
  - Anxiety [Unknown]
  - Depression [Unknown]
  - Brain fog [Recovered/Resolved]
  - Somnolence [Recovered/Resolved]
  - Dry mouth [Recovered/Resolved]
  - Therapeutic product effect variable [Unknown]
  - Migraine [Unknown]
  - Fibromyalgia [Unknown]
  - Adrenal insufficiency [Unknown]
  - Injection site reaction [Unknown]
  - Circadian rhythm sleep disorder [Unknown]
  - Headache [Unknown]
  - Adverse drug reaction [Unknown]

NARRATIVE: CASE EVENT DATE: 20210701
